FAERS Safety Report 6579902-6 (Version None)
Quarter: 2010Q1

REPORT INFORMATION
  Report Type: 
  Country: None (occurrence: None)
  Receive Date: 20100212
  Receipt Date: 20100202
  Transmission Date: 20100710
  Serious: Yes (Disabling)
  Sender: FDA-Public Use
  Company Number: GXKR2010NO01554

PATIENT
  Sex: Female

DRUGS (5)
  1. RANITIDINE HCL [Suspect]
     Indication: REFLUX OESOPHAGITIS
     Route: 065
     Dates: end: 20091222
  2. LIVIAL [Concomitant]
     Route: 065
  3. RELIFEX [Concomitant]
     Route: 065
  4. CATAPRESAN [Concomitant]
     Route: 065
  5. MAXALT [Concomitant]
     Route: 065

REACTIONS (3)
  - BLISTER [None]
  - PAIN [None]
  - PSEUDOPORPHYRIA [None]
